FAERS Safety Report 12357140 (Version 4)
Quarter: 2016Q4

REPORT INFORMATION
  Report Type: Report from Study
  Country: None (occurrence: US)
  Receive Date: 20160511
  Receipt Date: 20161004
  Transmission Date: 20170207
  Serious: Yes (Hospitalization)
  Sender: FDA-Public Use
  Company Number: US-ABBVIE-16K-163-1603416-00

PATIENT
  Sex: Female

DRUGS (3)
  1. METHOTREXATE. [Suspect]
     Active Substance: METHOTREXATE
     Indication: PRODUCT USED FOR UNKNOWN INDICATION
     Route: 065
  2. HUMIRA [Suspect]
     Active Substance: ADALIMUMAB
     Route: 058
     Dates: start: 2016
  3. HUMIRA [Suspect]
     Active Substance: ADALIMUMAB
     Indication: RHEUMATOID ARTHRITIS
     Route: 058
     Dates: start: 20160320, end: 201604

REACTIONS (14)
  - Gait disturbance [Unknown]
  - Alopecia [Unknown]
  - Nausea [Recovered/Resolved]
  - Joint stiffness [Unknown]
  - Chills [Recovered/Resolved]
  - Malaise [Recovered/Resolved]
  - Fatigue [Unknown]
  - Heart rate increased [Recovered/Resolved]
  - Joint swelling [Unknown]
  - Impaired self-care [Unknown]
  - Hyperhidrosis [Recovered/Resolved]
  - Activities of daily living impaired [Unknown]
  - Arthralgia [Unknown]
  - Pain [Unknown]

NARRATIVE: CASE EVENT DATE: 2016
